FAERS Safety Report 7670080-9 (Version None)
Quarter: 2011Q3

REPORT INFORMATION
  Report Type: 
  Country: None (occurrence: None)
  Receive Date: 20110808
  Receipt Date: 20110806
  Transmission Date: 20111222
  Serious: No
  Sender: FDA-Public Use
  Company Number: US-PFIZER INC-2011180202

PATIENT
  Sex: Female
  Weight: 59.864 kg

DRUGS (1)
  1. ADVIL LIQUI-GELS [Suspect]
     Indication: TOOTHACHE
     Dosage: 400 MG, UNK
     Route: 048
     Dates: start: 20110805

REACTIONS (2)
  - SWOLLEN TONGUE [None]
  - TONGUE PRURITUS [None]
